FAERS Safety Report 6748988-8 (Version None)
Quarter: 2010Q2

REPORT INFORMATION
  Report Type: 
  Country: None (occurrence: None)
  Receive Date: 20100601
  Receipt Date: 20100525
  Transmission Date: 20101027
  Serious: Yes (Hospitalization, Other)
  Sender: FDA-Public Use
  Company Number: US-ELI_LILLY_AND_COMPANY-US201005007077

PATIENT
  Sex: Male

DRUGS (9)
  1. HUMULIN R [Suspect]
     Indication: DIABETES MELLITUS
     Dosage: 60 U, AS NEEDED
     Dates: start: 20100501
  2. HUMULIN R [Suspect]
     Dosage: 60 U, AS NEEDED
     Dates: start: 19950101
  3. LANTUS [Concomitant]
  4. CARVEDILOL [Concomitant]
     Dosage: 12.5 MG, UNKNOWN
  5. CIPRO [Concomitant]
     Dosage: 500 MG, UNKNOWN
  6. METOLAZONE [Concomitant]
     Dosage: 10 MG, UNKNOWN
  7. PLAVIX [Concomitant]
     Dosage: 75 MG, UNKNOWN
  8. ASPIRIN [Concomitant]
  9. SENNA [Concomitant]
     Dosage: 8.6 MG, UNKNOWN

REACTIONS (8)
  - CONSTIPATION [None]
  - FAECALOMA [None]
  - GASTRIC HAEMORRHAGE [None]
  - LOCAL SWELLING [None]
  - POOR PERIPHERAL CIRCULATION [None]
  - PRODUCT CONTAINER ISSUE [None]
  - RENAL DISORDER [None]
  - TOE AMPUTATION [None]
